FAERS Safety Report 7138214-2 (Version None)
Quarter: 2010Q4

REPORT INFORMATION
  Report Type: 
  Country: None (occurrence: None)
  Receive Date: 20101202
  Receipt Date: 20101202
  Transmission Date: 20110411
  Serious: Yes (Death)
  Sender: FDA-Public Use
  Company Number: None

PATIENT
  Age: 77 Year
  Sex: Male

DRUGS (6)
  1. REVLIMID [Suspect]
     Indication: MYELODYSPLASTIC SYNDROME
     Dosage: 10MG DAILY ORALLY
     Route: 048
     Dates: start: 20100304, end: 20100430
  2. FUROSEMIDE [Concomitant]
  3. FOLIC ACID [Concomitant]
  4. ASPIRIN [Concomitant]
  5. INDOMETHACIN [Concomitant]
  6. VITAMIN D (ORAL SUPPLEMENT) [Concomitant]

REACTIONS (1)
  - PLATELET COUNT DECREASED [None]
